FAERS Safety Report 25534283 (Version 1)
Quarter: 2025Q3

REPORT INFORMATION
  Report Type: Spontaneous
  Country: US (occurrence: None)
  Receive Date: 20250708
  Receipt Date: 20250708
  Transmission Date: 20251020
  Serious: Yes (Death)
  Sender: FDA-CTU
  Company Number: None

PATIENT
  Age: 77 Year
  Sex: Male

DRUGS (7)
  1. LENALIDOMIDE [Suspect]
     Active Substance: LENALIDOMIDE
     Indication: Plasma cell myeloma
     Dosage: FREQUENCY : DAILY;?
     Route: 048
     Dates: start: 20250516
  2. HUMALOG KWIK INJ 100/ML [Concomitant]
  3. INS DEGL FLX INJ 1OOUNIT [Concomitant]
  4. LOSARTAN POT TAB 50MG [Concomitant]
  5. MEMANTINE TAB HCL 10MG [Concomitant]
  6. MEMANTINE TAB HCL 5MG [Concomitant]
  7. ONDANSETRON [Concomitant]
     Active Substance: ONDANSETRON

REACTIONS (1)
  - Death [None]

NARRATIVE: CASE EVENT DATE: 20250705
